FAERS Safety Report 7863754-8 (Version None)
Quarter: 2011Q4

REPORT INFORMATION
  Report Type: 
  Country: None (occurrence: None)
  Receive Date: 20111027
  Receipt Date: 20111014
  Transmission Date: 20120403
  Serious: Yes (Death)
  Sender: FDA-Public Use
  Company Number: JP-MYLANLABS-2011S1018536

PATIENT
  Age: 63 Year
  Sex: Female
  Weight: 57.6 kg

DRUGS (8)
  1. DECADRON PHOSPHATE [Concomitant]
     Indication: PRODUCT USED FOR UNKNOWN INDICATION
     Route: 042
     Dates: start: 20110831, end: 20110831
  2. TAXOTERE [Concomitant]
     Indication: PRODUCT USED FOR UNKNOWN INDICATION
     Route: 042
     Dates: start: 20110613, end: 20110708
  3. GEMZAR [Concomitant]
     Indication: PRODUCT USED FOR UNKNOWN INDICATION
     Route: 042
     Dates: start: 20110715, end: 20110729
  4. KYTRIL [Concomitant]
     Indication: PRODUCT USED FOR UNKNOWN INDICATION
     Route: 042
     Dates: start: 20110831, end: 20110831
  5. CARBOPLATIN [Suspect]
     Indication: OVARIAN CANCER STAGE III
     Route: 033
     Dates: start: 20110809, end: 20110831
  6. FLOMOX [Concomitant]
     Indication: PRODUCT USED FOR UNKNOWN INDICATION
     Route: 048
     Dates: start: 20110831, end: 20110831
  7. LASIX [Concomitant]
     Indication: PRODUCT USED FOR UNKNOWN INDICATION
     Route: 048
     Dates: start: 20110627
  8. AQUPLA [Concomitant]
     Indication: OVARIAN CANCER
     Route: 042
     Dates: start: 20110418, end: 20110606

REACTIONS (4)
  - OFF LABEL USE [None]
  - DISSEMINATED INTRAVASCULAR COAGULATION [None]
  - ANAPHYLACTIC SHOCK [None]
  - HAEMOLYTIC URAEMIC SYNDROME [None]
